FAERS Safety Report 10515086 (Version 2)
Quarter: 2015Q1

REPORT INFORMATION
  Report Type: Spontaneous
  Country: JP (occurrence: JP)
  Receive Date: 20141014
  Receipt Date: 20150303
  Transmission Date: 20150720
  Serious: Yes (Other)
  Sender: FDA-Public Use
  Company Number: JP-AMGEN-JPNOT2014078401

PATIENT
  Age: 71 Year
  Sex: Female
  Weight: 52 kg

DRUGS (16)
  1. LAC B [Concomitant]
     Active Substance: BIFIDOBACTERIUM SPP.
     Dosage: UNK
     Route: 065
  2. LOPEMIN                            /00384302/ [Concomitant]
     Dosage: UNK
     Route: 065
  3. KINDAVATE [Concomitant]
     Dosage: UNK
     Route: 065
  4. URSO [Concomitant]
     Active Substance: URSODIOL
     Dosage: UNK
     Route: 065
  5. RANMARK [Suspect]
     Active Substance: DENOSUMAB
     Indication: METASTASES TO BONE
     Dosage: 120 MG, UNK
     Route: 058
     Dates: start: 20130201
  6. ALLELOCK [Concomitant]
     Active Substance: OLOPATADINE HYDROCHLORIDE
     Dosage: UNK
     Route: 065
  7. PROTECADIN [Concomitant]
     Active Substance: LAFUTIDINE
     Dosage: UNK
     Route: 065
  8. TARCEVA [Concomitant]
     Active Substance: ERLOTINIB HYDROCHLORIDE
     Dosage: UNK
     Route: 065
     Dates: start: 20130817
  9. GLYCYRON                           /00466401/ [Concomitant]
     Dosage: UNK
     Route: 065
  10. METHYCOBAL [Concomitant]
     Active Substance: METHYLCOBALAMIN
     Dosage: UNK
     Route: 065
  11. ASPARA-CA [Concomitant]
     Active Substance: CALCIUM ASPARTATE
     Dosage: UNK
     Route: 065
  12. CLOBETASOL PROPIONATE. [Concomitant]
     Active Substance: CLOBETASOL PROPIONATE
     Dosage: UNK
     Route: 065
  13. OLIVE OIL [Concomitant]
     Active Substance: OLIVE OIL
     Dosage: UNK
     Route: 065
  14. NEO-MEDROL                         /00259601/ [Concomitant]
     Dosage: UNK
     Route: 065
  15. MYONAL                             /01071502/ [Concomitant]
     Dosage: UNK
     Route: 065
  16. ZINC OXIDE. [Concomitant]
     Active Substance: ZINC OXIDE
     Dosage: UNK
     Route: 065

REACTIONS (1)
  - Osteonecrosis of jaw [Not Recovered/Not Resolved]

NARRATIVE: CASE EVENT DATE: 20140818
